FAERS Safety Report 4864209-5 (Version None)
Quarter: 2005Q4

REPORT INFORMATION
  Report Type: 
  Country: None (occurrence: None)
  Receive Date: 20051222
  Receipt Date: 20051214
  Transmission Date: 20060501
  Serious: Yes (Hospitalization)
  Sender: FDA-Public Use
  Company Number: US-AMGEN-US161739

PATIENT
  Sex: Male
  Weight: 74.9 kg

DRUGS (10)
  1. PROCRIT [Suspect]
     Indication: ANAEMIA
     Route: 058
     Dates: start: 20041001
  2. FLOMAX [Concomitant]
     Route: 048
  3. GLIPIZIDE [Concomitant]
     Route: 048
  4. GLUCOPHAGE [Concomitant]
     Route: 048
  5. K-DUR 10 [Concomitant]
     Route: 048
  6. NEURONTIN [Concomitant]
     Route: 048
  7. IRON [Concomitant]
     Route: 048
  8. ASCORBIC ACID [Concomitant]
  9. MULTIVITAMIN [Concomitant]
     Route: 048
  10. LOPRESSOR [Concomitant]

REACTIONS (6)
  - CHOLECYSTECTOMY [None]
  - COLONIC POLYP [None]
  - GASTROINTESTINAL ULCER [None]
  - POST PROCEDURAL HAEMORRHAGE [None]
  - RECTAL HAEMORRHAGE [None]
  - WEIGHT DECREASED [None]
